FAERS Safety Report 16506479 (Version 1)
Quarter: 2019Q3

REPORT INFORMATION
  Report Type: Spontaneous
  Country: MX (occurrence: MX)
  Receive Date: 20190701
  Receipt Date: 20190701
  Transmission Date: 20191004
  Serious: Yes (Other)
  Sender: FDA-Public Use
  Company Number: MX-ASTRAZENECA-2019SE94667

PATIENT
  Age: 25962 Day
  Sex: Female
  Weight: 60 kg

DRUGS (6)
  1. SYMBICORT [Suspect]
     Active Substance: BUDESONIDE\FORMOTEROL FUMARATE DIHYDRATE
     Indication: CHRONIC OBSTRUCTIVE PULMONARY DISEASE
     Dosage: 80 / 4.5 MCG 1 DAILY
     Route: 055
     Dates: start: 20170617, end: 20171217
  2. OMEPRAZOL [Concomitant]
     Active Substance: OMEPRAZOLE
     Indication: CONSTIPATION
     Route: 048
     Dates: start: 20190217
  3. SPIRIBA [Concomitant]
     Indication: CHRONIC OBSTRUCTIVE PULMONARY DISEASE
     Route: 055
     Dates: start: 20140617
  4. DAXXAS [Suspect]
     Active Substance: ROFLUMILAST
     Indication: CHRONIC OBSTRUCTIVE PULMONARY DISEASE
     Route: 048
     Dates: start: 20190317
  5. LIVERTRIM [Concomitant]
     Indication: CONSTIPATION
     Dosage: 1 TABLET EVERY 12 HRS.
     Route: 048
     Dates: start: 20190217
  6. ULTIBRO [Concomitant]
     Active Substance: GLYCOPYRRONIUM\INDACATEROL
     Indication: CHRONIC OBSTRUCTIVE PULMONARY DISEASE
     Dosage: 110/50 MCG 1 INHALATION DAILY IN THE MORNING
     Route: 055
     Dates: start: 20190317

REACTIONS (4)
  - Constipation [Not Recovered/Not Resolved]
  - Abdominal discomfort [Not Recovered/Not Resolved]
  - Drug ineffective [Recovered/Resolved]
  - Product dose omission [Not Recovered/Not Resolved]

NARRATIVE: CASE EVENT DATE: 20170617
